FAERS Safety Report 9206805 (Version 1)
Quarter: 2013Q2

REPORT INFORMATION
  Report Type: Spontaneous
  Country: US (occurrence: None)
  Receive Date: 20130401
  Receipt Date: 20130401
  Transmission Date: 20140414
  Serious: No
  Sender: FDA-Public Use
  Company Number: None

PATIENT
  Sex: Female

DRUGS (1)
  1. AFINITOR [Suspect]
     Indication: BREAST CANCER
     Dosage: (1 TAB)
     Route: 048
     Dates: start: 20130201, end: 20130228

REACTIONS (2)
  - Pneumonia [None]
  - Haemorrhage [None]
